FAERS Safety Report 18277211 (Version 4)
Quarter: 2020Q4

REPORT INFORMATION
  Report Type: Spontaneous
  Country: FR (occurrence: FR)
  Receive Date: 20200917
  Receipt Date: 20201027
  Transmission Date: 20210113
  Serious: Yes (Other)
  Sender: FDA-Public Use
  Company Number: FR-BAUSCH-BL-2020-026701

PATIENT
  Age: 69 Year
  Sex: Male

DRUGS (2)
  1. KYNTHEUM (BRODALUMAB) [Suspect]
     Active Substance: BRODALUMAB
     Indication: PSORIASIS
     Dosage: 1 INJECTION WEEKLY ?TEMPORALITY DISCONTINUED?1 INJECTION WEEKLY FOR 3 WEEKS
     Route: 058
     Dates: start: 201907, end: 2019
  2. KYNTHEUM (BRODALUMAB) [Suspect]
     Active Substance: BRODALUMAB
     Dosage: RESUMED, 1 INJECTION WEEKLY FOR 3 WEEKS AND THEN 1 INJECTION EVERY 2 WEEKS
     Route: 058
     Dates: start: 20190920, end: 202008

REACTIONS (2)
  - Therapeutic response unexpected [Unknown]
  - Iridocyclitis [Not Recovered/Not Resolved]

NARRATIVE: CASE EVENT DATE: 201908
